FAERS Safety Report 18555708 (Version 2)
Quarter: 2021Q3

REPORT INFORMATION
  Report Type: Report from Study
  Country: US (occurrence: US)
  Receive Date: 20201127
  Receipt Date: 20210909
  Transmission Date: 20211014
  Serious: No
  Sender: FDA-Public Use
  Company Number: NVSC2020US309898

PATIENT
  Sex: Female

DRUGS (2)
  1. COREG [Suspect]
     Active Substance: CARVEDILOL
     Indication: PRODUCT USED FOR UNKNOWN INDICATION
     Dosage: UNK
     Route: 065
  2. ENTRESTO [Suspect]
     Active Substance: SACUBITRIL\VALSARTAN
     Indication: CARDIAC FAILURE
     Dosage: UNK
     Route: 048
     Dates: start: 2018

REACTIONS (5)
  - Dizziness [Recovering/Resolving]
  - Arthralgia [Unknown]
  - Blood pressure decreased [Unknown]
  - Dyspnoea [Unknown]
  - Hypotension [Recovering/Resolving]
